FAERS Safety Report 21347309 (Version 1)
Quarter: 2022Q3

REPORT INFORMATION
  Report Type: Spontaneous
  Country: DE (occurrence: DE)
  Receive Date: 20220919
  Receipt Date: 20220919
  Transmission Date: 20221027
  Serious: Yes (Death, Other)
  Sender: FDA-Public Use
  Company Number: DE-002147023-NVSC2022DE201320

PATIENT
  Sex: Female
  Weight: 46 kg

DRUGS (4)
  1. LETROZOLE [Suspect]
     Active Substance: LETROZOLE
     Indication: Breast cancer
     Dosage: 2.5 MILLIGRAM, ONCE A DAY (2.5 MG, QD)
     Route: 048
     Dates: start: 20210624, end: 20211129
  2. PALBOCICLIB [Suspect]
     Active Substance: PALBOCICLIB
     Indication: Breast cancer
     Dosage: 100 MILLIGRAM, ONCE A DAY (100 MG, QD (DAILY FROM DAY 1 TO DAY 21 EVERY 28 DAY CYCLE))
     Route: 048
     Dates: start: 20210624, end: 20210811
  3. PALBOCICLIB [Suspect]
     Active Substance: PALBOCICLIB
     Dosage: 75 MILLIGRAM, ONCE A DAY (75 MG, QD (DAILY FROM DAY 1 TO DAY 21 EVERY 28 DAY CYCLE))
     Route: 048
     Dates: start: 20210826, end: 20211109
  4. PALBOCICLIB [Suspect]
     Active Substance: PALBOCICLIB
     Dosage: 125 MILLIGRAM, ONCE A DAY (125 MG, QD (DAILY FROM DAY 1 TO DAY 21 EVERY 28 DAY CYCLE))
     Route: 048
     Dates: start: 20211028, end: 20211109

REACTIONS (2)
  - Breast cancer [Fatal]
  - Malignant neoplasm progression [Fatal]

NARRATIVE: CASE EVENT DATE: 20220209
